FAERS Safety Report 19841939 (Version 1)
Quarter: 2021Q3

REPORT INFORMATION
  Report Type: Report from Study
  Country: EG (occurrence: EG)
  Receive Date: 20210915
  Receipt Date: 20210915
  Transmission Date: 20211014
  Serious: Yes (Other)
  Sender: FDA-Public Use
  Company Number: NVSC2021EG208949

PATIENT
  Sex: Male
  Weight: 20 kg

DRUGS (5)
  1. OMNITROPE [Suspect]
     Active Substance: SOMATROPIN
     Indication: GROWTH HORMONE DEFICIENCY
     Dosage: UNK (ONE CARTRIDGE WOULD LAST FOR 10 DAYS)
     Route: 058
     Dates: start: 20171204
  2. IRON [Concomitant]
     Active Substance: IRON
     Indication: PRODUCT USED FOR UNKNOWN INDICATION
     Dosage: ONE SPOONFUL, QD (STARTED ABOUT 3 YEARS AGO)
     Route: 065
  3. VITAMINS [Concomitant]
     Active Substance: VITAMINS
     Indication: PRODUCT USED FOR UNKNOWN INDICATION
     Dosage: UNK (STARTED ABOUT 3 YEARS AGO)
     Route: 065
  4. OCTOZINC [Concomitant]
     Indication: PRODUCT USED FOR UNKNOWN INDICATION
     Dosage: 1 DF, QD
     Route: 065
     Dates: start: 2017
  5. OMNITROPE [Suspect]
     Active Substance: SOMATROPIN
     Dosage: UNK (ONE CARTRIDGE BECAME LASTING FOR 5 DAYS)
     Route: 058

REACTIONS (1)
  - Growth retardation [Not Recovered/Not Resolved]
